FAERS Safety Report 16974437 (Version 1)
Quarter: 2019Q4

REPORT INFORMATION
  Report Type: Spontaneous
  Country: US (occurrence: US)
  Receive Date: 20191030
  Receipt Date: 20191030
  Transmission Date: 20200122
  Serious: Yes (Other)
  Sender: FDA-Public Use
  Company Number: US-DRREDDYS-USA/USA/19/0115548

PATIENT
  Age: 36 Year
  Sex: Female

DRUGS (1)
  1. OLANZAPINE FILM-COATED TABLET [Suspect]
     Active Substance: OLANZAPINE
     Indication: MANIA
     Dosage: AT BEDTIME
     Route: 048

REACTIONS (1)
  - Metabolic disorder [Unknown]
